FAERS Safety Report 21371953 (Version 1)
Quarter: 2022Q3

REPORT INFORMATION
  Report Type: Spontaneous
  Country: US (occurrence: US)
  Receive Date: 20220923
  Receipt Date: 20220923
  Transmission Date: 20221027
  Serious: Yes (Hospitalization)
  Sender: FDA-Public Use
  Company Number: US-BAUSCH-BL-2022-022350

PATIENT
  Age: 56 Year
  Sex: Female

DRUGS (15)
  1. ELIDEL [Suspect]
     Active Substance: PIMECROLIMUS
     Indication: Product used for unknown indication
     Route: 065
  2. DUPIXENT [Suspect]
     Active Substance: DUPILUMAB
     Indication: Asthma
     Dosage: STRENGTH 300MG/2 ML?600 MG ONCE FOLLOWED BY LOADING DOSE OF 300 MG ONCE EVERY OTHER WEEK.
     Route: 058
     Dates: start: 20220224
  3. DUPIXENT [Suspect]
     Active Substance: DUPILUMAB
     Dosage: 300MG/2 ML?600 MG ONCE FOLLOWED BY LOADING DOSE OF 300 MG ONCE EVERY OTHER WEEK.
     Route: 058
     Dates: start: 20220310
  4. KETOCONAZOLE [Suspect]
     Active Substance: KETOCONAZOLE
     Indication: Asthma
     Dosage: ONCE
     Route: 058
  5. KETOCONAZOLE [Suspect]
     Active Substance: KETOCONAZOLE
     Dosage: ONCE EVERY OTHER WEEK
     Route: 058
  6. DOXYCYCLINE [Suspect]
     Active Substance: DOXYCYCLINE
     Indication: Product used for unknown indication
     Route: 065
  7. LIOTHYRONINE SODIUM [Suspect]
     Active Substance: LIOTHYRONINE SODIUM
     Indication: Product used for unknown indication
     Route: 065
  8. LEVOTHYROXINE SODIUM [Suspect]
     Active Substance: LEVOTHYROXINE SODIUM
     Indication: Product used for unknown indication
     Route: 065
  9. DEPO-MEDROL [Suspect]
     Active Substance: METHYLPREDNISOLONE ACETATE
     Indication: Product used for unknown indication
     Route: 065
  10. DIPHENHYDRAMINE HYDROCHLORIDE\GUAIFENESIN [Suspect]
     Active Substance: DIPHENHYDRAMINE HYDROCHLORIDE\GUAIFENESIN
     Indication: Product used for unknown indication
     Route: 065
  11. ZOFRAN ODT [Suspect]
     Active Substance: ONDANSETRON HYDROCHLORIDE
     Indication: Product used for unknown indication
     Route: 065
  12. LEVALBUTEROL [Suspect]
     Active Substance: LEVALBUTEROL
     Indication: Product used for unknown indication
     Route: 065
  13. TRIAMCINOLONE DIACETATE [Suspect]
     Active Substance: TRIAMCINOLONE DIACETATE
     Indication: Product used for unknown indication
     Route: 065
  14. MAALOX H2 [Concomitant]
     Indication: Product used for unknown indication
     Route: 065
  15. LIDOCAINE [Concomitant]
     Active Substance: LIDOCAINE
     Indication: Product used for unknown indication
     Route: 065

REACTIONS (17)
  - Blister [Unknown]
  - Condition aggravated [Unknown]
  - Food allergy [Unknown]
  - Erythema [Unknown]
  - Hypersensitivity [Unknown]
  - Nausea [Unknown]
  - Abdominal pain upper [Unknown]
  - Dehydration [Unknown]
  - Muscle spasms [Unknown]
  - Cough [Unknown]
  - Asthma [Unknown]
  - Herpes zoster [Unknown]
  - COVID-19 [Unknown]
  - Hypoaesthesia [Unknown]
  - Confusional state [Unknown]
  - Rosacea [Unknown]
  - Injection site pain [Unknown]

NARRATIVE: CASE EVENT DATE: 20220310
